FAERS Safety Report 7402871-3 (Version None)
Quarter: 2011Q2

REPORT INFORMATION
  Report Type: 
  Country: None (occurrence: None)
  Receive Date: 20110408
  Receipt Date: 20110404
  Transmission Date: 20111010
  Serious: Yes (Other)
  Sender: FDA-Public Use
  Company Number: US-ALLERGAN-1104724US

PATIENT
  Age: 29 Year
  Sex: Female

DRUGS (1)
  1. BOTOXA? [Suspect]
     Indication: BLEPHAROSPASM
     Dosage: 20 UNITS, SINGLE
     Route: 030
     Dates: start: 20110301, end: 20110301

REACTIONS (2)
  - HYPERVENTILATION [None]
  - CONVULSION [None]
